FAERS Safety Report 14321021 (Version 3)
Quarter: 2018Q3

REPORT INFORMATION
  Report Type: Spontaneous
  Country: IN (occurrence: IN)
  Receive Date: 20171223
  Receipt Date: 20180827
  Transmission Date: 20181010
  Serious: Yes (Death)
  Sender: FDA-Public Use
  Company Number: IN-CIPLA LTD.-2017IN24577

PATIENT

DRUGS (3)
  1. VINCRISTINE [Suspect]
     Active Substance: VINCRISTINE
     Indication: RETINOBLASTOMA
     Dosage: 0.55 TO 0.61 MG ON DAY?1, 12 CYCLES,4?WEEK INTERVALS
     Route: 042
     Dates: start: 201405, end: 201507
  2. ETOPOSIDE. [Suspect]
     Active Substance: ETOPOSIDE
     Indication: RETINOBLASTOMA
     Dosage: 66 MG TO 73 MG ON DAY?1 AND 2, UNK, 12 CYCLES, 4?WEEK INTERVALS
     Route: 042
     Dates: start: 201405, end: 201507
  3. CARBOPLATIN. [Suspect]
     Active Substance: CARBOPLATIN
     Indication: RETINOBLASTOMA
     Dosage: 150 MG TO 170 MG ON DAY?1 AND 2, UNK, 12 CYCLES, 4?WEEK INTERVALS
     Route: 042
     Dates: start: 201405, end: 201507

REACTIONS (2)
  - Tumour lysis syndrome [Fatal]
  - Acute myeloid leukaemia [Fatal]
